FAERS Safety Report 5744028-8 (Version None)
Quarter: 2008Q2

REPORT INFORMATION
  Report Type: 
  Country: None (occurrence: None)
  Receive Date: 20080516
  Receipt Date: 20080516
  Transmission Date: 20081010
  Serious: Yes (Hospitalization)
  Sender: FDA-Public Use
  Company Number: None

PATIENT
  Age: 66 Year
  Sex: Female

DRUGS (1)
  1. MELOXICAM [Suspect]
     Dosage: 7.5 MG BID PO
     Route: 048

REACTIONS (2)
  - ABDOMINAL PAIN [None]
  - GASTRIC ULCER [None]
